FAERS Safety Report 19200867 (Version 6)
Quarter: 2022Q1

REPORT INFORMATION
  Report Type: Report from Study
  Country: IT (occurrence: None)
  Receive Date: 20210430
  Receipt Date: 20220313
  Transmission Date: 20220423
  Serious: Yes (Other)
  Sender: FDA-Public Use
  Company Number: IT-ROCHE-2683848

PATIENT
  Age: 50 Year
  Sex: Female
  Weight: 72 kg

DRUGS (17)
  1. ATEZOLIZUMAB [Suspect]
     Active Substance: ATEZOLIZUMAB
     Indication: Breast cancer
     Dosage: ON 18/SEP/2020, SHE RECEIVED LAST DOSE OF ATEZOLIZUMAB BEFORE SAE 8 COURSE.
     Route: 041
     Dates: start: 20200326
  2. PERTUZUMAB [Suspect]
     Active Substance: PERTUZUMAB
     Indication: Breast cancer
     Dosage: ON 18/SEP/2020, SHE RECEIVED LAST DOSE (420 MG) OF PERTUZUMAB BEFORE SAE 8 COURSE.
     Route: 042
     Dates: start: 20200326
  3. TRASTUZUMAB [Suspect]
     Active Substance: TRASTUZUMAB
     Indication: Breast cancer
     Dosage: ON 18/SEP/2020, SHE RECEIVED LAST DOSE (410 MG) OF TRASTUZUMAB BEFORE SAE 8 COURSE.
     Route: 042
     Dates: start: 20200326
  4. PACLITAXEL [Suspect]
     Active Substance: PACLITAXEL
     Indication: Breast cancer
     Dosage: ON 17/JUL/2020, SHE RECEIVED LAST DOSE (160 MG) OF PACLITAXEL BEFORE SAE 12 COURSE.
     Route: 042
     Dates: start: 20200326
  5. CARBOPLATIN [Suspect]
     Active Substance: CARBOPLATIN
     Indication: Breast cancer
     Dosage: ON 17/JUL/2020, SHE RECEIVED LAST DOSE (230 MG) OF CARBOPLATINUM BEFORE SAE.
     Route: 042
     Dates: start: 20200326
  6. PREDNISONE [Concomitant]
     Active Substance: PREDNISONE
     Indication: Synovitis
     Dates: start: 20201004, end: 20201019
  7. PREDNISONE [Concomitant]
     Active Substance: PREDNISONE
     Dates: start: 20201028, end: 20201120
  8. PREDNISONE [Concomitant]
     Active Substance: PREDNISONE
     Dosage: EVERY OTHER DAY
     Dates: start: 20201221, end: 20210114
  9. PREDNISONE [Concomitant]
     Active Substance: PREDNISONE
     Dates: start: 20210115
  10. PREDNISONE [Concomitant]
     Active Substance: PREDNISONE
     Dates: start: 20200918, end: 20200927
  11. CYCLOBENZAPRINE HYDROCHLORIDE [Concomitant]
     Active Substance: CYCLOBENZAPRINE HYDROCHLORIDE
     Route: 048
     Dates: start: 20210115
  12. PREGABALIN [Concomitant]
     Active Substance: PREGABALIN
     Route: 048
     Dates: start: 20200912, end: 20200929
  13. PREGABALIN [Concomitant]
     Active Substance: PREGABALIN
     Route: 048
     Dates: start: 20200930, end: 20201105
  14. PREGABALIN [Concomitant]
     Active Substance: PREGABALIN
     Route: 048
     Dates: start: 20201106, end: 20201224
  15. PREGABALIN [Concomitant]
     Active Substance: PREGABALIN
     Route: 048
     Dates: start: 20201225, end: 20210328
  16. PREGABALIN [Concomitant]
     Active Substance: PREGABALIN
     Route: 048
     Dates: start: 20210315
  17. CYCLOBENZAPRINE HYDROCHLORIDE [Concomitant]
     Active Substance: CYCLOBENZAPRINE HYDROCHLORIDE

REACTIONS (1)
  - Synovitis [Not Recovered/Not Resolved]

NARRATIVE: CASE EVENT DATE: 20200918
